FAERS Safety Report 9541161 (Version 2)
Quarter: 2013Q4

REPORT INFORMATION
  Report Type: Spontaneous
  Country: US (occurrence: US)
  Receive Date: 20130923
  Receipt Date: 20131022
  Transmission Date: 20140711
  Serious: No
  Sender: FDA-Public Use
  Company Number: US-BIOGENIDEC-2013BI087475

PATIENT
  Age: 35 Year
  Sex: Female

DRUGS (1)
  1. TYSABRI [Suspect]
     Indication: CROHN^S DISEASE
     Route: 042
     Dates: start: 20120508, end: 20130819

REACTIONS (4)
  - Abdominal pain [Unknown]
  - Gastrointestinal stoma complication [Unknown]
  - Pain [Unknown]
  - Drug ineffective [Unknown]
